FAERS Safety Report 14304937 (Version 1)
Quarter: 2017Q4

REPORT INFORMATION
  Report Type: Spontaneous
  Country: JP (occurrence: JP)
  Receive Date: 20171219
  Receipt Date: 20171219
  Transmission Date: 20180321
  Serious: Yes (Other)
  Sender: FDA-Public Use
  Company Number: JP-OTSUKA-03100-JPN-07-0169

PATIENT
  Age: 54 Year
  Sex: Male
  Weight: 51 kg

DRUGS (6)
  1. MAGMITT [Concomitant]
     Active Substance: MAGNESIUM OXIDE
     Dosage: 330 MG, TID
     Route: 048
     Dates: start: 20070323
  2. ZOPICLONE [Concomitant]
     Active Substance: ZOPICLONE
     Indication: INSOMNIA
     Dosage: 7.5 MG, UNK
     Route: 048
     Dates: start: 20070323
  3. ABILIFY [Suspect]
     Active Substance: ARIPIPRAZOLE
     Dosage: 18 MG, QD
     Route: 048
     Dates: start: 20070323, end: 20070415
  4. AMOBAN [Concomitant]
     Active Substance: ZOPICLONE
     Dosage: 7.5 MG, QD
     Route: 048
     Dates: start: 20070323
  5. ABILIFY [Suspect]
     Active Substance: ARIPIPRAZOLE
     Route: 048
     Dates: start: 20070416
  6. DEPAS [Concomitant]
     Active Substance: ETIZOLAM
     Dosage: 0.5 MG, QD
     Route: 048
     Dates: start: 20070323

REACTIONS (1)
  - Water intoxication [Recovered/Resolved]

NARRATIVE: CASE EVENT DATE: 20070414
